FAERS Safety Report 9357758 (Version 1)
Quarter: 2013Q2

REPORT INFORMATION
  Report Type: Spontaneous
  Country: BR (occurrence: BR)
  Receive Date: 20130620
  Receipt Date: 20130620
  Transmission Date: 20140414
  Serious: Yes (Hospitalization)
  Sender: FDA-Public Use
  Company Number: BR-SANOFI-AVENTIS-2013SA061216

PATIENT
  Sex: Male
  Weight: 80 kg

DRUGS (10)
  1. LANTUS [Suspect]
     Indication: TYPE 2 DIABETES MELLITUS
     Dosage: DOSE: 20 TO 25 IU
     Route: 058
  2. LANTUS [Suspect]
     Indication: TYPE 2 DIABETES MELLITUS
     Route: 058
  3. NPH INSULIN [Suspect]
     Indication: TYPE 2 DIABETES MELLITUS
     Route: 065
  4. DEVICE NOS [Suspect]
     Indication: DEVICE THERAPY
  5. AAS [Concomitant]
     Indication: ANTICOAGULANT THERAPY
     Route: 048
     Dates: start: 2010
  6. OMEPRAZOLE [Concomitant]
     Indication: GASTRIC DISORDER
     Route: 048
     Dates: start: 2010
  7. PURAN T4 [Concomitant]
     Indication: HYPOTHYROIDISM
     Route: 048
     Dates: start: 1997
  8. LOSARTAN [Concomitant]
     Indication: BLOOD PRESSURE
     Route: 048
     Dates: start: 1997
  9. SIMVASTATIN [Concomitant]
     Indication: BLOOD CHOLESTEROL
     Route: 048
     Dates: start: 1997
  10. METFORMIN [Concomitant]
     Indication: TYPE 2 DIABETES MELLITUS
     Route: 048
     Dates: start: 1997

REACTIONS (7)
  - Cerebrovascular accident [Recovered/Resolved]
  - Headache [Unknown]
  - Sensory loss [Unknown]
  - Hypoglycaemia [Recovering/Resolving]
  - Sensory loss [Recovering/Resolving]
  - Injection site pain [Recovering/Resolving]
  - Injection site discolouration [Recovering/Resolving]
